FAERS Safety Report 14946174 (Version 2)
Quarter: 2019Q1

REPORT INFORMATION
  Report Type: Spontaneous
  Country: BR (occurrence: BR)
  Receive Date: 20180529
  Receipt Date: 20190212
  Transmission Date: 20190417
  Serious: Yes (Other)
  Sender: FDA-Public Use
  Company Number: PHHY2018BR008181

PATIENT
  Sex: Male
  Weight: 60 kg

DRUGS (2)
  1. FORASEQ [Suspect]
     Active Substance: BUDESONIDE\FORMOTEROL FUMARATE
     Indication: ALLERGIC RESPIRATORY SYMPTOM
     Dosage: 1 DF, Q12H
     Route: 065
  2. FORASEQ [Suspect]
     Active Substance: BUDESONIDE\FORMOTEROL FUMARATE
     Dosage: 1 DF, PRN (USED ONLY WHEN PRESENTS EPISODE)
     Route: 065

REACTIONS (5)
  - Gastritis [Not Recovered/Not Resolved]
  - Product use in unapproved indication [Not Recovered/Not Resolved]
  - Heart rate decreased [Not Recovered/Not Resolved]
  - Parosmia [Not Recovered/Not Resolved]
  - Dyspnoea [Not Recovered/Not Resolved]
